FAERS Safety Report 19654420 (Version 5)
Quarter: 2022Q1

REPORT INFORMATION
  Report Type: Spontaneous
  Country: US (occurrence: US)
  Receive Date: 20210804
  Receipt Date: 20220307
  Transmission Date: 20220424
  Serious: Yes (Hospitalization)
  Sender: FDA-Public Use
  Company Number: US-NOVOPROD-832185

PATIENT
  Sex: Female

DRUGS (1)
  1. NOVOLOG MIX 70/30 [Suspect]
     Active Substance: INSULIN ASPART
     Indication: Product used for unknown indication
     Dosage: 70 IU, QD (40 UNITS IN THE MORNING 30 UNITS AT NIGHT)
     Route: 058

REACTIONS (3)
  - Blood glucose increased [Recovered/Resolved]
  - Device breakage [Unknown]
  - Product packaging issue [Unknown]
